FAERS Safety Report 20839382 (Version 3)
Quarter: 2022Q3

REPORT INFORMATION
  Report Type: Spontaneous
  Country: AR (occurrence: AR)
  Receive Date: 20220517
  Receipt Date: 20220704
  Transmission Date: 20221027
  Serious: Yes (Death, Life-Threatening, Hospitalization, Other)
  Sender: FDA-Public Use
  Company Number: AR-PFIZER INC-202200711594

PATIENT
  Age: 15 Year
  Sex: Female
  Weight: 35 kg

DRUGS (2)
  1. GENOTROPIN [Suspect]
     Active Substance: SOMATROPIN
     Indication: Hypopituitarism
     Dosage: 1 MG, DAILY, 6 TIMES PER WEEK
     Dates: start: 20150817
  2. LEVOTHYROXINE [Concomitant]
     Active Substance: LEVOTHYROXINE
     Dosage: 50 UG
     Dates: start: 20190429

REACTIONS (6)
  - Gastrointestinal haemorrhage [Fatal]
  - Cardiogenic shock [Fatal]
  - Colitis ulcerative [Fatal]
  - Gastritis [Fatal]
  - Anaemia [Fatal]
  - Thrombocytopenia [Fatal]

NARRATIVE: CASE EVENT DATE: 20220416
